FAERS Safety Report 9267115 (Version 2)
Quarter: 2013Q2

REPORT INFORMATION
  Report Type: Spontaneous
  Country: US (occurrence: US)
  Receive Date: 20130502
  Receipt Date: 20130618
  Transmission Date: 20140414
  Serious: Yes (Hospitalization, Other)
  Sender: FDA-Public Use
  Company Number: US-PFIZER INC-2013134402

PATIENT
  Age: 77 Year
  Sex: Male
  Weight: 71.66 kg

DRUGS (2)
  1. LIPITOR [Suspect]
     Indication: BLOOD CHOLESTEROL INCREASED
     Dosage: 40 MG, 1X/DAY
     Dates: start: 201108, end: 2012
  2. CITALOPRAM [Concomitant]
     Indication: DEPRESSION
     Dosage: UNK, 1X/DAY

REACTIONS (10)
  - Cerebrovascular accident [Unknown]
  - Cerebral haemorrhage [Unknown]
  - Brain injury [Unknown]
  - Clostridium difficile infection [Unknown]
  - Convulsion [Unknown]
  - Coma [Unknown]
  - Aphagia [Unknown]
  - Weight decreased [Unknown]
  - Aphasia [Unknown]
  - Liver disorder [Unknown]
